FAERS Safety Report 10759877 (Version 1)
Quarter: 2015Q1

REPORT INFORMATION
  Report Type: Spontaneous
  Country: DE (occurrence: DE)
  Receive Date: 20150203
  Receipt Date: 20150203
  Transmission Date: 20150721
  Serious: Yes (Other)
  Sender: FDA-Public Use
  Company Number: PHHY2015DE011697

PATIENT
  Sex: Male

DRUGS (5)
  1. CERTICAN [Suspect]
     Active Substance: EVEROLIMUS
     Dosage: 0.25 MG, BID
     Route: 065
     Dates: start: 201107
  2. ATORVASTATIN [Concomitant]
     Active Substance: ATORVASTATIN
     Indication: PRODUCT USED FOR UNKNOWN INDICATION
     Route: 065
  3. CERTICAN [Suspect]
     Active Substance: EVEROLIMUS
     Indication: SCLERODERMA
     Dosage: 1 MG, BID
     Route: 065
     Dates: start: 201107
  4. CERTICAN [Suspect]
     Active Substance: EVEROLIMUS
     Indication: AUTOIMMUNE DISORDER
     Dosage: 0.5 MG, BID
     Route: 065
     Dates: start: 201107
  5. SIMVASTATIN. [Concomitant]
     Active Substance: SIMVASTATIN
     Indication: PRODUCT USED FOR UNKNOWN INDICATION
     Route: 065

REACTIONS (4)
  - Pneumonia [Unknown]
  - Dizziness [Unknown]
  - Off label use [Unknown]
  - Myocardial infarction [Unknown]
